FAERS Safety Report 17736663 (Version 2)
Quarter: 2020Q3

REPORT INFORMATION
  Report Type: Spontaneous
  Country: US (occurrence: US)
  Receive Date: 20200501
  Receipt Date: 20200731
  Transmission Date: 20201102
  Serious: Yes (Death, Hospitalization)
  Sender: FDA-Public Use
  Company Number: US-VIFOR (INTERNATIONAL) INC.-VIT-2020-05581

PATIENT
  Age: 49 Year
  Sex: Female
  Weight: 105 kg

DRUGS (1)
  1. VELTASSA [Suspect]
     Active Substance: PATIROMER
     Indication: HYPERKALAEMIA
     Dates: start: 20190510

REACTIONS (6)
  - Fatigue [Unknown]
  - Pain [Unknown]
  - Cardio-respiratory arrest [Fatal]
  - Pyrexia [Unknown]
  - Chills [Unknown]
  - Influenza [Unknown]

NARRATIVE: CASE EVENT DATE: 20200114
